FAERS Safety Report 19511667 (Version 2)
Quarter: 2022Q2

REPORT INFORMATION
  Report Type: Spontaneous
  Country: US (occurrence: US)
  Receive Date: 20210709
  Receipt Date: 20220418
  Transmission Date: 20220720
  Serious: Yes (Hospitalization)
  Sender: FDA-Public Use
  Company Number: US-SA-SAC20210706000011

PATIENT
  Age: 13 Year
  Sex: Female

DRUGS (3)
  1. FABRAZYME [Suspect]
     Active Substance: AGALSIDASE BETA
     Indication: Fabry^s disease
     Dosage: 75 MG, QOW
     Route: 041
     Dates: start: 20191105
  2. FABRAZYME [Suspect]
     Active Substance: AGALSIDASE BETA
     Dosage: INCREASED DOSE, QOW
     Route: 041
     Dates: end: 202106
  3. FABRAZYME [Suspect]
     Active Substance: AGALSIDASE BETA
     Dosage: 55 MG, QOW (STRENGTH 35MG DOSE : 35 MG , STRENGTH 5MG DOSE : 20 MG )
     Route: 042
     Dates: start: 2019

REACTIONS (4)
  - Diarrhoea [Unknown]
  - Vomiting [Unknown]
  - Abdominal pain [Not Recovered/Not Resolved]
  - Product dose omission issue [Unknown]

NARRATIVE: CASE EVENT DATE: 20210611
